FAERS Safety Report 15414531 (Version 1)
Quarter: 2018Q3

REPORT INFORMATION
  Report Type: Spontaneous
  Country: US (occurrence: US)
  Receive Date: 20180921
  Receipt Date: 20180921
  Transmission Date: 20181010
  Serious: No
  Sender: FDA-Public Use
  Company Number: US-GLAXOSMITHKLINE-US2018167908

PATIENT
  Sex: Female

DRUGS (1)
  1. VENTOLIN HFA [Suspect]
     Active Substance: ALBUTEROL SULFATE
     Indication: CHRONIC OBSTRUCTIVE PULMONARY DISEASE
     Dosage: 2 PUFF(S), 6D
     Route: 055

REACTIONS (4)
  - Food poisoning [Recovered/Resolved]
  - Malaise [Recovered/Resolved]
  - Gastroenteritis viral [Recovered/Resolved]
  - Wrong technique in product usage process [Unknown]
